FAERS Safety Report 15208264 (Version 4)
Quarter: 2022Q3

REPORT INFORMATION
  Report Type: Spontaneous
  Country: BE (occurrence: BE)
  Receive Date: 20180727
  Receipt Date: 20220727
  Transmission Date: 20221027
  Serious: Yes (Other)
  Sender: FDA-Public Use
  Company Number: None

PATIENT
  Age: 24 Year
  Sex: Female

DRUGS (11)
  1. METOPROLOL [Suspect]
     Active Substance: METOPROLOL
     Indication: Occupational exposure to product
     Dosage: UNK (AIRBORNE EXPOSURE DURING HER WORK AS A PHARMACY ASSISTANT)
     Route: 061
  2. PERINDOPRIL [Suspect]
     Active Substance: PERINDOPRIL
     Indication: Occupational exposure to product
     Dosage: UNK (AIRBORNE EXPOSURE DURING HER WORK AS A PHARMACY ASSISTANT)
     Route: 061
  3. SOTALOL [Suspect]
     Active Substance: SOTALOL
     Indication: Occupational exposure to product
     Dosage: UNK (AIRBORNE EXPOSURE DURING HER WORK AS A PHARMACY ASSISTANT)
     Route: 061
  4. ENALAPRIL [Suspect]
     Active Substance: ENALAPRIL
     Indication: Occupational exposure to product
     Dosage: UNK (AIRBORNE EXPOSURE DURING HER WORK AS A PHARMACY ASSISTANT)
     Route: 061
  5. CAPTOPRIL [Suspect]
     Active Substance: CAPTOPRIL
     Indication: Occupational exposure to product
     Dosage: UNK
     Route: 065
  6. ALPRAZOLAM [Suspect]
     Active Substance: ALPRAZOLAM
     Indication: Occupational exposure to product
     Dosage: UNK
     Route: 065
  7. LORMETAZEPAM [Suspect]
     Active Substance: LORMETAZEPAM
     Indication: Occupational exposure to product
     Dosage: UNK (AIRBORNE EXPOSURE DURING HER WORK AS A PHARMACY ASSISTANT)
     Route: 061
  8. BISOPROLOL [Suspect]
     Active Substance: BISOPROLOL
     Indication: Occupational exposure to product
     Dosage: UNK (AIRBORNE EXPOSURE DURING HER WORK AS A PHARMACY ASSISTANT)
     Route: 061
  9. HYDROCHLOROTHIAZIDE\LISINOPRIL [Suspect]
     Active Substance: HYDROCHLOROTHIAZIDE\LISINOPRIL
     Indication: Occupational exposure to product
     Dosage: UNK (AIRBORNE EXPOSURE DURING HER WORK AS A PHARMACY ASSISTANT)
     Route: 061
  10. TETRAZEPAM [Suspect]
     Active Substance: TETRAZEPAM
     Indication: Occupational exposure to product
     Dosage: UNK (AIRBORNE EXPOSURE DURING HER WORK AS A PHARMACY ASSISTANT)
     Route: 061
  11. PROPRANOLOL HYDROCHLORIDE [Suspect]
     Active Substance: PROPRANOLOL HYDROCHLORIDE
     Indication: Occupational exposure to product
     Dosage: UNK (AIRBORNE EXPOSURE DURING HER WORK AS A PHARMACY ASSISTANT)
     Route: 061

REACTIONS (8)
  - Skin test positive [Unknown]
  - Blepharitis [Unknown]
  - Wrong technique in product usage process [Unknown]
  - Occupational exposure to product [Unknown]
  - Localised oedema [Unknown]
  - Pruritus [Unknown]
  - Erythema [Unknown]
  - Skin exfoliation [Unknown]

NARRATIVE: CASE EVENT DATE: 20120101
